FAERS Safety Report 19140131 (Version 1)
Quarter: 2021Q2

REPORT INFORMATION
  Report Type: Spontaneous
  Country: US (occurrence: US)
  Receive Date: 20210415
  Receipt Date: 20210415
  Transmission Date: 20210717
  Serious: Yes (Hospitalization, Disabling, Other)
  Sender: FDA-Public Use
  Company Number: None

PATIENT
  Age: 77 Year
  Sex: Female

DRUGS (1)
  1. ANASTROZOLE GENERIC FOR ARMIDEX [Suspect]
     Active Substance: ANASTROZOLE
     Indication: INVASIVE LOBULAR BREAST CARCINOMA
     Dosage: ?          QUANTITY:1 DF DOSAGE FORM;?
     Route: 048
     Dates: start: 20200219, end: 20210227

REACTIONS (6)
  - Nephrolithiasis [None]
  - Anaemia [None]
  - Depression [None]
  - Surgical failure [None]
  - Spinal compression fracture [None]
  - Bone loss [None]

NARRATIVE: CASE EVENT DATE: 20210217
